FAERS Safety Report 6868075-8 (Version None)
Quarter: 2010Q3

REPORT INFORMATION
  Report Type: 
  Country: None (occurrence: None)
  Receive Date: 20100722
  Receipt Date: 20080623
  Transmission Date: 20110219
  Serious: No
  Sender: FDA-Public Use
  Company Number: US-PFIZER INC-2008041971

PATIENT
  Sex: Male
  Weight: 61.69 kg

DRUGS (3)
  1. CHANTIX [Suspect]
     Indication: SMOKING CESSATION THERAPY
     Dates: start: 20080501
  2. MULTI-VITAMINS [Concomitant]
  3. AMINO ACIDS [Concomitant]

REACTIONS (2)
  - BLOOD URINE PRESENT [None]
  - RASH [None]
